FAERS Safety Report 4921364-6 (Version None)
Quarter: 2006Q1

REPORT INFORMATION
  Report Type: 
  Country: None (occurrence: None)
  Receive Date: 20060224
  Receipt Date: 20050926
  Transmission Date: 20060701
  Serious: Yes (Other)
  Sender: FDA-Public Use
  Company Number: PHEH2005US10715

PATIENT
  Age: 52 Year
  Sex: Female

DRUGS (12)
  1. AREDIA [Suspect]
     Indication: BONE PAIN
     Dosage: UNK, UNK
  2. PROLEUKIN [Concomitant]
     Route: 058
     Dates: start: 19990501, end: 20000122
  3. WARFARIN SODIUM [Concomitant]
     Dosage: 7.5 MG, QD
  4. LASIX [Concomitant]
     Indication: OEDEMA
     Dosage: 20 MG, QD
  5. VASOTEC RPD [Concomitant]
     Dosage: 5 MG, QD
  6. HYDROXYZINE HYDROCHLORIDE [Concomitant]
  7. ZAROXOLYN [Concomitant]
  8. NEURONTIN [Concomitant]
     Indication: NEUROPATHY
  9. XANAX [Concomitant]
     Indication: ANXIETY
  10. LIPITOR [Concomitant]
     Indication: HYPERCHOLESTEROLAEMIA
  11. ALBUTEROL [Concomitant]
     Indication: ASTHMA
  12. ZOFRAN [Concomitant]

REACTIONS (10)
  - ABSCESS [None]
  - ALVEOLOPLASTY [None]
  - BACTERIAL INFECTION [None]
  - BONE DISORDER [None]
  - BONE NEOPLASM MALIGNANT [None]
  - INFLAMMATION [None]
  - OSTEONECROSIS [None]
  - PAIN IN JAW [None]
  - SUBMANDIBULAR MASS [None]
  - WOUND DRAINAGE [None]
